FAERS Safety Report 9402546 (Version 3)
Quarter: 2013Q3

REPORT INFORMATION
  Report Type: Spontaneous
  Country: US (occurrence: US)
  Receive Date: 20130716
  Receipt Date: 20130912
  Transmission Date: 20140515
  Serious: Yes (Death, Other)
  Sender: FDA-Public Use
  Company Number: US-PFIZER INC-2013206152

PATIENT
  Age: 60 Year
  Sex: Male

DRUGS (4)
  1. CHANTIX [Suspect]
     Indication: NICOTINE DEPENDENCE
     Dosage: UNK
  2. CHANTIX [Suspect]
     Dosage: UNK, AS NEEDED
     Dates: start: 201008
  3. CHANTIX [Suspect]
     Dosage: UNK, ONCE DAILY
     Dates: start: 201010
  4. CHANTIX [Suspect]
     Dosage: UNK
     Dates: start: 20101001, end: 20110331

REACTIONS (1)
  - Completed suicide [Fatal]
